FAERS Safety Report 8282332-2 (Version None)
Quarter: 2012Q2

REPORT INFORMATION
  Report Type: 
  Country: None (occurrence: None)
  Receive Date: 20120413
  Receipt Date: 20120409
  Transmission Date: 20120825
  Serious: Yes (Hospitalization)
  Sender: FDA-Public Use
  Company Number: US-GILEAD-2012-0052191

PATIENT
  Sex: Male

DRUGS (3)
  1. LETAIRIS [Suspect]
     Indication: PULMONARY HYPERTENSION
     Dosage: 10 MG, UNK
     Route: 048
     Dates: start: 20100407
  2. LETAIRIS [Suspect]
     Indication: HEART DISEASE CONGENITAL
  3. ADCIRCA [Concomitant]

REACTIONS (2)
  - ASCITES [None]
  - RENAL FAILURE [None]
